FAERS Safety Report 7934496-5 (Version None)
Quarter: 2011Q4

REPORT INFORMATION
  Report Type: 
  Country: None (occurrence: None)
  Receive Date: 20111122
  Receipt Date: 20110718
  Transmission Date: 20120403
  Serious: Yes (Life-Threatening, Hospitalization)
  Sender: FDA-Public Use
  Company Number: DE-GLAXOSMITHKLINE-D0072108A

PATIENT
  Sex: Male
  Weight: 76 kg

DRUGS (4)
  1. ZOPICLON [Suspect]
     Indication: BIPOLAR DISORDER
     Route: 048
     Dates: end: 20110717
  2. LAMICTAL [Suspect]
     Indication: BIPOLAR DISORDER
     Dosage: 150MG TWICE PER DAY
     Route: 048
     Dates: end: 20110717
  3. LITHIUM CARBONATE [Suspect]
     Indication: BIPOLAR DISORDER
     Dosage: 675MG TWICE PER DAY
     Route: 048
     Dates: end: 20110717
  4. ZYPREXA [Suspect]
     Indication: BIPOLAR DISORDER
     Dosage: 15MG PER DAY
     Route: 048
     Dates: end: 20110717

REACTIONS (3)
  - SLOW RESPONSE TO STIMULI [None]
  - TOXICITY TO VARIOUS AGENTS [None]
  - SUICIDAL IDEATION [None]
